FAERS Safety Report 19370786 (Version 3)
Quarter: 2023Q2

REPORT INFORMATION
  Report Type: Report from Study
  Country: CN (occurrence: CN)
  Receive Date: 20210603
  Receipt Date: 20230404
  Transmission Date: 20230721
  Serious: Yes (Death)
  Sender: FDA-Public Use
  Company Number: CN-PFIZER INC-2021623367

PATIENT
  Age: 44 Year
  Sex: Male
  Weight: 47.5 kg

DRUGS (5)
  1. PACLITAXEL [Suspect]
     Active Substance: PACLITAXEL
     Indication: Squamous cell carcinoma of lung
     Dosage: 271 MG, EVERY 3 WEEKS
     Route: 041
     Dates: start: 20210306, end: 20210306
  2. PACLITAXEL [Suspect]
     Active Substance: PACLITAXEL
     Dosage: 271 MG, EVERY 3 WEEKS
     Route: 041
     Dates: start: 20210330, end: 20210330
  3. CARBOPLATIN [Suspect]
     Active Substance: CARBOPLATIN
     Indication: Squamous cell carcinoma of lung
     Dosage: 550 MG, EVERY 3 WEEKS
     Route: 041
     Dates: start: 20210306, end: 20210306
  4. INVESTIGATIONAL PRODUCT [Suspect]
     Active Substance: INVESTIGATIONAL PRODUCT
     Indication: Squamous cell carcinoma of lung
     Dosage: UNK UNK, EVERY 3 WEEKS
     Route: 041
     Dates: start: 20210305, end: 20210305
  5. INVESTIGATIONAL PRODUCT [Suspect]
     Active Substance: INVESTIGATIONAL PRODUCT
     Dosage: UNK UNK, EVERY 3 WEEKS
     Route: 041
     Dates: start: 20210329, end: 20210329

REACTIONS (1)
  - Malnutrition [Fatal]

NARRATIVE: CASE EVENT DATE: 20210425
